FAERS Safety Report 6368974-X (Version None)
Quarter: 2009Q3

REPORT INFORMATION
  Report Type: 
  Country: None (occurrence: None)
  Receive Date: 20090922
  Receipt Date: 20090915
  Transmission Date: 20100115
  Serious: Yes (Other)
  Sender: FDA-Public Use
  Company Number: US-ELI_LILLY_AND_COMPANY-US200909004436

PATIENT
  Sex: Female

DRUGS (1)
  1. BYETTA [Suspect]
     Dosage: UNK, UNK

REACTIONS (3)
  - NAUSEA [None]
  - PANCREATITIS [None]
  - RHEUMATOID ARTHRITIS [None]
